FAERS Safety Report 8593071-2 (Version None)
Quarter: 2012Q3

REPORT INFORMATION
  Report Type: 
  Country: None (occurrence: None)
  Receive Date: 20120814
  Receipt Date: 20120807
  Transmission Date: 20120928
  Serious: Yes (Other)
  Sender: FDA-Public Use
  Company Number: JP-GLAXOSMITHKLINE-B0821899A

PATIENT

DRUGS (2)
  1. PHENOBARBITAL TAB [Concomitant]
     Route: 065
  2. LAMICTAL [Suspect]
     Indication: EPILEPSY
     Route: 048

REACTIONS (2)
  - SKIN DISORDER [None]
  - RASH GENERALISED [None]
